FAERS Safety Report 8977883 (Version 1)
Quarter: 2012Q4

REPORT INFORMATION
  Report Type: 
  Country: IT (occurrence: IT)
  Receive Date: 20121220
  Receipt Date: 20121220
  Transmission Date: 20130627
  Serious: Yes (Other)
  Sender: FDA-Public Use
  Company Number: PHHY2012IT110721

PATIENT
  Age: 78 Year
  Sex: Male

DRUGS (3)
  1. ZOMETA [Suspect]
     Indication: PROSTATE CANCER METASTATIC
     Dosage: 4 mg, UNK
     Route: 042
     Dates: start: 20071101, end: 20111001
  2. COLECALCIFEROL [Concomitant]
     Indication: HYPOVITAMINOSIS
     Dosage: 25 drp weekly
     Dates: start: 20120601
  3. DELTACORTENE [Concomitant]
     Indication: PROSTATE CANCER METASTATIC
     Dosage: 10 mg, daily
     Dates: start: 20120601

REACTIONS (1)
  - Osteonecrosis of jaw [Not Recovered/Not Resolved]
